FAERS Safety Report 8934549 (Version 1)
Quarter: 2012Q4

REPORT INFORMATION
  Report Type: 
  Country: TW (occurrence: TW)
  Receive Date: 20121129
  Receipt Date: 20121129
  Transmission Date: 20130627
  Serious: Yes (Hospitalization, Disabling)
  Sender: FDA-Public Use
  Company Number: TW-BAYER-2012-124111

PATIENT
  Age: 34 Year
  Sex: Male

DRUGS (1)
  1. IOPROMIDE [Suspect]

REACTIONS (2)
  - Anaphylactic shock [None]
  - Hypoxic-ischaemic encephalopathy [None]
